FAERS Safety Report 4803098-1 (Version None)
Quarter: 2005Q4

REPORT INFORMATION
  Report Type: 
  Country: None (occurrence: None)
  Receive Date: 20051017
  Receipt Date: 20051017
  Transmission Date: 20060501
  Serious: Yes (Other)
  Sender: FDA-Public Use
  Company Number: None

PATIENT
  Sex: Female
  Weight: 49.6689 kg

DRUGS (12)
  1. NAVELBINE [Suspect]
     Indication: OROPHARYNGEAL CANCER STAGE UNSPECIFIED
     Dosage: 46MG  QWEEK   IV BOLUS
     Route: 040
     Dates: start: 20050901, end: 20051014
  2. PRAVACHOL [Concomitant]
  3. KADIAN [Concomitant]
  4. OXYCODONE [Concomitant]
  5. ZOLOFT [Concomitant]
  6. LACTULOSE [Concomitant]
  7. KYTRIL [Concomitant]
  8. PROCHLORPERAZINE [Concomitant]
  9. PREVACID [Concomitant]
  10. CARBOPLATIN/TAXOL [Concomitant]
  11. TAXOTERE [Concomitant]
  12. METHOTREXATE [Concomitant]

REACTIONS (2)
  - ACUTE PULMONARY OEDEMA [None]
  - FEELING ABNORMAL [None]
